FAERS Safety Report 16424251 (Version 1)
Quarter: 2019Q2

REPORT INFORMATION
  Report Type: Spontaneous
  Country: CN (occurrence: CN)
  Receive Date: 20190613
  Receipt Date: 20190613
  Transmission Date: 20190711
  Serious: Yes (Other)
  Sender: FDA-Public Use
  Company Number: CN-ROCHE-2332486

PATIENT
  Age: 54 Year
  Sex: Female

DRUGS (17)
  1. HERCEPTIN [Suspect]
     Active Substance: TRASTUZUMAB
     Indication: BREAST CANCER METASTATIC
     Dosage: DAY1
     Route: 065
     Dates: start: 20170618, end: 20171002
  2. IBANDRONATE [Concomitant]
     Active Substance: IBANDRONATE SODIUM
     Indication: BREAST CANCER METASTATIC
     Route: 065
     Dates: start: 20170618, end: 20171002
  3. CAPECITABINE. [Concomitant]
     Active Substance: CAPECITABINE
     Indication: BREAST CANCER METASTATIC
     Dosage: DAY 1-14
     Route: 065
     Dates: start: 20170618, end: 20171002
  4. CAPECITABINE. [Concomitant]
     Active Substance: CAPECITABINE
     Route: 065
     Dates: start: 20180809, end: 20181106
  5. CAPECITABINE. [Concomitant]
     Active Substance: CAPECITABINE
     Route: 065
     Dates: start: 20190201, end: 20190409
  6. CAPECITABINE. [Concomitant]
     Active Substance: CAPECITABINE
     Route: 065
     Dates: start: 20190430, end: 20190521
  7. HERCEPTIN [Suspect]
     Active Substance: TRASTUZUMAB
     Route: 065
     Dates: start: 20190430, end: 20190521
  8. CAPECITABINE. [Concomitant]
     Active Substance: CAPECITABINE
     Dosage: 2 CYCLES
     Route: 065
     Dates: start: 20181127
  9. HERCEPTIN [Suspect]
     Active Substance: TRASTUZUMAB
     Dosage: DAY1; 2 CYCLES
     Route: 065
     Dates: start: 20171125
  10. HERCEPTIN [Suspect]
     Active Substance: TRASTUZUMAB
     Dosage: 2CYCLES;-DAY1
     Route: 065
     Dates: start: 20180507
  11. CAPECITABINE. [Concomitant]
     Active Substance: CAPECITABINE
     Dosage: DAY 1-14; 2 CYCLES
     Route: 065
     Dates: start: 20180507
  12. HERCEPTIN [Suspect]
     Active Substance: TRASTUZUMAB
     Route: 065
     Dates: start: 20190108
  13. HERCEPTIN [Suspect]
     Active Substance: TRASTUZUMAB
     Dosage: 3 CYCLES
     Route: 065
     Dates: start: 20190201, end: 20190409
  14. DOCETAXEL. [Concomitant]
     Active Substance: DOCETAXEL
     Indication: BREAST CANCER METASTATIC
     Dosage: DAY: 1
     Route: 065
     Dates: start: 20170618, end: 20171002
  15. HERCEPTIN [Suspect]
     Active Substance: TRASTUZUMAB
     Route: 065
     Dates: start: 20180809, end: 20181106
  16. HERCEPTIN [Suspect]
     Active Substance: TRASTUZUMAB
     Dosage: 2 CYCLES
     Route: 065
     Dates: start: 20181127
  17. CAPECITABINE. [Concomitant]
     Active Substance: CAPECITABINE
     Dosage: DAY1-14
     Route: 065
     Dates: start: 20171025, end: 20171116

REACTIONS (2)
  - Skin reaction [Unknown]
  - Bone marrow failure [Unknown]

NARRATIVE: CASE EVENT DATE: 2018
